FAERS Safety Report 11674637 (Version 37)
Quarter: 2018Q2

REPORT INFORMATION
  Report Type: Report from Study
  Country: CA (occurrence: CA)
  Receive Date: 20151028
  Receipt Date: 20180522
  Transmission Date: 20180711
  Serious: Yes (Hospitalization, Other)
  Sender: FDA-Public Use
  Company Number: CA-ROCHE-1647639

PATIENT
  Age: 74 Year
  Sex: Female

DRUGS (3)
  1. ACTEMRA [Suspect]
     Active Substance: TOCILIZUMAB
     Indication: RHEUMATOID ARTHRITIS
     Route: 042
     Dates: start: 2013
  2. ACTEMRA [Suspect]
     Active Substance: TOCILIZUMAB
     Dosage: FIRST RPAP DOSE
     Route: 042
     Dates: start: 20150917
  3. ACTEMRA [Suspect]
     Active Substance: TOCILIZUMAB
     Route: 042
     Dates: start: 20160908

REACTIONS (34)
  - Infected skin ulcer [Not Recovered/Not Resolved]
  - Diarrhoea [Not Recovered/Not Resolved]
  - Heart rate decreased [Unknown]
  - Pneumonia [Recovering/Resolving]
  - Peripheral swelling [Recovering/Resolving]
  - Wound [Recovering/Resolving]
  - Breath sounds abnormal [Unknown]
  - Abdominal pain [Not Recovered/Not Resolved]
  - Fatigue [Not Recovered/Not Resolved]
  - Limb mass [Unknown]
  - Respiratory rate increased [Unknown]
  - Cough [Not Recovered/Not Resolved]
  - Productive cough [Recovered/Resolved]
  - Abdominal mass [Unknown]
  - Asthenia [Not Recovered/Not Resolved]
  - Urinary tract infection [Unknown]
  - Oropharyngeal pain [Recovering/Resolving]
  - Rheumatoid arthritis [Not Recovered/Not Resolved]
  - Cellulitis [Recovered/Resolved]
  - Headache [Not Recovered/Not Resolved]
  - Fistula [Unknown]
  - Nausea [Not Recovered/Not Resolved]
  - Chills [Unknown]
  - Infusion related reaction [Unknown]
  - Oedema peripheral [Unknown]
  - Candida infection [Unknown]
  - Arthralgia [Not Recovered/Not Resolved]
  - Eye discharge [Recovered/Resolved]
  - Gastrointestinal carcinoma [Unknown]
  - Laceration [Not Recovered/Not Resolved]
  - Oxygen saturation decreased [Unknown]
  - Back pain [Unknown]
  - Body temperature increased [Unknown]
  - Oxygen saturation decreased [Unknown]

NARRATIVE: CASE EVENT DATE: 201511
